FAERS Safety Report 4901970-5 (Version None)
Quarter: 2006Q1

REPORT INFORMATION
  Report Type: 
  Country: None (occurrence: None)
  Receive Date: 20060201
  Receipt Date: 20060201
  Transmission Date: 20060701
  Serious: Yes (Life-Threatening, Disabling)
  Sender: FDA-Public Use
  Company Number: None

PATIENT
  Age: 45 Year
  Sex: Male

DRUGS (1)
  1. KLONOPIN [Suspect]
     Dosage: TAKE 5 TABS DAILY

REACTIONS (2)
  - AGGRESSION [None]
  - AGITATION [None]
